FAERS Safety Report 5968482-1 (Version None)
Quarter: 2008Q4

REPORT INFORMATION
  Report Type: 
  Country: None (occurrence: None)
  Receive Date: 20081121
  Receipt Date: 20081121
  Transmission Date: 20090506
  Serious: No
  Sender: FDA-Public Use
  Company Number: None

PATIENT
  Age: 53 Year
  Sex: Male
  Weight: 97.977 kg

DRUGS (1)
  1. ISOSORB MON 30MG ETHEX [Suspect]
     Indication: MYOCARDIAL INFARCTION
     Dosage: ONE PER DAY PO
     Route: 048
     Dates: start: 20041101, end: 20081120

REACTIONS (3)
  - DRUG INEFFECTIVE [None]
  - MUSCLE TWITCHING [None]
  - PRODUCT QUALITY ISSUE [None]
